FAERS Safety Report 5387072-5 (Version None)
Quarter: 2007Q3

REPORT INFORMATION
  Report Type: 
  Country: None (occurrence: None)
  Receive Date: 20070710
  Receipt Date: 20070628
  Transmission Date: 20080115
  Serious: Yes (Other)
  Sender: FDA-Public Use
  Company Number: 235330K07USA

PATIENT
  Age: 55 Year
  Sex: Female

DRUGS (9)
  1. REBIF [Suspect]
     Indication: MULTIPLE SCLEROSIS
     Dosage: 44 MCG, 3 IN 1 WEEKS, SUBCUTANEOUS
     Route: 058
     Dates: start: 20061102
  2. LEVOTHYROXINE SODIUM [Concomitant]
  3. PREMPRO 14/14 [Concomitant]
  4. SINEMET [Concomitant]
  5. COMTAN [Concomitant]
  6. LORAZEPAM [Concomitant]
  7. REQUIP [Concomitant]
  8. DESIPRAMINE HCL [Concomitant]
  9. TRILEPTAL [Concomitant]

REACTIONS (1)
  - CONVULSION [None]
